FAERS Safety Report 15598190 (Version 3)
Quarter: 2019Q1

REPORT INFORMATION
  Report Type: Spontaneous
  Country: US (occurrence: US)
  Receive Date: 20181108
  Receipt Date: 20190128
  Transmission Date: 20190417
  Serious: Yes (Other)
  Sender: FDA-Public Use
  Company Number: US-CELGENEUS-USA-20181000405

PATIENT
  Age: 69 Year
  Sex: Male

DRUGS (7)
  1. REVLIMID [Suspect]
     Active Substance: LENALIDOMIDE
     Indication: PLASMA CELL MYELOMA
     Dosage: 20 MILLIGRAM
     Route: 048
     Dates: start: 201705
  2. REVLIMID [Suspect]
     Active Substance: LENALIDOMIDE
     Dosage: 10 MILLIGRAM
     Route: 048
     Dates: start: 20180315, end: 20180330
  3. REVLIMID [Suspect]
     Active Substance: LENALIDOMIDE
     Dosage: 5 MILLIGRAM
     Route: 048
     Dates: start: 201812
  4. REVLIMID [Suspect]
     Active Substance: LENALIDOMIDE
     Dosage: 10 MILLIGRAM
     Route: 048
     Dates: start: 20181001
  5. REVLIMID [Suspect]
     Active Substance: LENALIDOMIDE
     Indication: ESSENTIAL HYPERTENSION
     Dosage: 25 MILLIGRAM
     Route: 048
     Dates: start: 201707
  6. REVLIMID [Suspect]
     Active Substance: LENALIDOMIDE
     Indication: FRACTURE
     Dosage: 15 MILLIGRAM
     Route: 048
     Dates: start: 201707
  7. REVLIMID [Suspect]
     Active Substance: LENALIDOMIDE
     Dosage: 10 MILLIGRAM
     Route: 048
     Dates: start: 201711

REACTIONS (8)
  - Pyrexia [Unknown]
  - Vital functions abnormal [Unknown]
  - Chills [Unknown]
  - White blood cell count decreased [Unknown]
  - Hypokalaemia [Unknown]
  - Blood count abnormal [Recovered/Resolved]
  - Pyrexia [Unknown]
  - Neutropenia [Unknown]

NARRATIVE: CASE EVENT DATE: 201812
